FAERS Safety Report 13859826 (Version 2)
Quarter: 2017Q3

REPORT INFORMATION
  Report Type: Report from Study
  Country: US (occurrence: US)
  Receive Date: 20170811
  Receipt Date: 20170913
  Transmission Date: 20171127
  Serious: Yes (Death)
  Sender: FDA-Public Use
  Company Number: US-PFIZER INC-2017342827

PATIENT
  Age: 27 Year
  Sex: Male

DRUGS (1)
  1. MORPHINE SULFATE. [Suspect]
     Active Substance: MORPHINE SULFATE
     Dosage: UNK

REACTIONS (12)
  - Bradypnoea [Fatal]
  - Respiratory depression [Fatal]
  - Hypotension [Fatal]
  - Acute lung injury [Fatal]
  - Acute kidney injury [Fatal]
  - Coagulopathy [Fatal]
  - Myocardial infarction [Fatal]
  - Bronchial hyperreactivity [Fatal]
  - Metabolic acidosis [Fatal]
  - Rhabdomyolysis [Fatal]
  - Toxicity to various agents [Fatal]
  - Depressed level of consciousness [Fatal]
